FAERS Safety Report 19321000 (Version 2)
Quarter: 2021Q2

REPORT INFORMATION
  Report Type: Report from Study
  Country: AU (occurrence: AU)
  Receive Date: 20210527
  Receipt Date: 20210615
  Transmission Date: 20210717
  Serious: Yes (Other)
  Sender: FDA-Public Use
  Company Number: NVSC2021AU083953

PATIENT
  Age: 60 Year
  Sex: Male

DRUGS (3)
  1. MAYZENT [Suspect]
     Active Substance: SIPONIMOD
     Dosage: 1 MG, QD
     Route: 048
  2. MAYZENT [Suspect]
     Active Substance: SIPONIMOD
     Indication: SECONDARY PROGRESSIVE MULTIPLE SCLEROSIS
     Dosage: 1 MG, QD
     Route: 048
     Dates: start: 20210406
  3. MAYZENT [Suspect]
     Active Substance: SIPONIMOD
     Dosage: UNK, (MAINTAINENCE DOSE)
     Route: 065
     Dates: start: 20210411

REACTIONS (4)
  - Malaise [Unknown]
  - Dementia [Unknown]
  - Abdominal pain upper [Unknown]
  - Product storage error [Unknown]

NARRATIVE: CASE EVENT DATE: 20210406
